FAERS Safety Report 8390981-6 (Version None)
Quarter: 2012Q2

REPORT INFORMATION
  Report Type: 
  Country: None (occurrence: None)
  Receive Date: 20120529
  Receipt Date: 20120522
  Transmission Date: 20120825
  Serious: Yes (Hospitalization)
  Sender: FDA-Public Use
  Company Number: US-BAYER-2011-112949

PATIENT
  Age: 32 Year
  Sex: Female
  Weight: 105.22 kg

DRUGS (4)
  1. LORTAB [Concomitant]
     Dosage: UNK UNK, PRN
  2. DROSPIRENONE AND ETHINYL ESTRADIOL [Suspect]
     Dosage: UNK
     Dates: start: 20080601, end: 20100101
  3. SYNTHROID [Concomitant]
     Dosage: 0.5 MG, DAILY
     Route: 048
  4. YASMIN [Suspect]
     Dosage: UNK
     Dates: start: 20080601, end: 20100101

REACTIONS (7)
  - SCAR [None]
  - GALLBLADDER INJURY [None]
  - PAIN [None]
  - GENERAL PHYSICAL HEALTH DETERIORATION [None]
  - CHOLECYSTITIS ACUTE [None]
  - EMOTIONAL DISTRESS [None]
  - ANXIETY [None]
